FAERS Safety Report 6602039-4 (Version None)
Quarter: 2010Q1

REPORT INFORMATION
  Report Type: 
  Country: None (occurrence: None)
  Receive Date: 20100225
  Receipt Date: 20100219
  Transmission Date: 20100710
  Serious: Yes (Death)
  Sender: FDA-Public Use
  Company Number: US-GILEAD-2010-0027223

PATIENT
  Sex: Female
  Weight: 56.75 kg

DRUGS (10)
  1. LETAIRIS [Suspect]
     Indication: PULMONARY ARTERIAL HYPERTENSION
     Route: 048
     Dates: start: 20080424, end: 20100215
  2. REVATIO [Concomitant]
  3. DIOVAN [Concomitant]
  4. ENULOSE [Concomitant]
  5. HYDROCHLOROTHIAZIDE [Concomitant]
  6. POTASSIUM CHLORIDE [Concomitant]
  7. XIFAXAN [Concomitant]
  8. ALDACTONE [Concomitant]
  9. LASIX [Concomitant]
  10. BETAPACE [Concomitant]

REACTIONS (2)
  - DEATH [None]
  - OEDEMA [None]
